FAERS Safety Report 9624664 (Version 2)
Quarter: 2015Q2

REPORT INFORMATION
  Report Type: Spontaneous
  Country: TN (occurrence: TN)
  Receive Date: 20131015
  Receipt Date: 20150507
  Transmission Date: 20150821
  Serious: Yes (Hospitalization)
  Sender: FDA-Public Use
  Company Number: PHHY2013TN112473

PATIENT
  Age: 33 Year
  Sex: Male

DRUGS (1)
  1. RISPERIDONE. [Suspect]
     Active Substance: RISPERIDONE
     Indication: DELUSIONAL DISORDER, PERSECUTORY TYPE
     Dosage: 2 MG, BID
     Route: 065

REACTIONS (1)
  - Deep vein thrombosis [Recovering/Resolving]
